FAERS Safety Report 6733093-7 (Version None)
Quarter: 2010Q2

REPORT INFORMATION
  Report Type: 
  Country: None (occurrence: None)
  Receive Date: 20100518
  Receipt Date: 20100505
  Transmission Date: 20101027
  Serious: Yes (Death, Hospitalization)
  Sender: FDA-Public Use
  Company Number: GB-2010-0467

PATIENT
  Age: 71 Year
  Sex: Female

DRUGS (2)
  1. NAVELBINE [Suspect]
     Indication: ADENOCARCINOMA
     Dates: start: 20090901, end: 20091001
  2. CISPLATIN [Suspect]
     Indication: ADENOCARCINOMA
     Dates: start: 20090901, end: 20091001

REACTIONS (9)
  - BRONCHOPNEUMONIA [None]
  - GENERAL PHYSICAL HEALTH DETERIORATION [None]
  - INTERSTITIAL LUNG DISEASE [None]
  - KLEBSIELLA INFECTION [None]
  - MOBILITY DECREASED [None]
  - NEUTROPENIC SEPSIS [None]
  - NO THERAPEUTIC RESPONSE [None]
  - PNEUMONIA [None]
  - TRAUMATIC LUNG INJURY [None]
